FAERS Safety Report 7832594-8 (Version None)
Quarter: 2011Q4

REPORT INFORMATION
  Report Type: 
  Country: None (occurrence: None)
  Receive Date: 20111024
  Receipt Date: 20111012
  Transmission Date: 20120403
  Serious: Yes (Hospitalization)
  Sender: FDA-Public Use
  Company Number: JP-BIOGENIDEC-2011BI039863

PATIENT
  Age: 41 Year
  Sex: Female

DRUGS (3)
  1. AVONEX [Suspect]
     Route: 030
     Dates: start: 20100827
  2. AVONEX [Suspect]
     Indication: RELAPSING-REMITTING MULTIPLE SCLEROSIS
     Route: 030
     Dates: start: 20090430, end: 20100110
  3. LOXONTIN (LOXOPROFEN SODIUM HYDRATE) [Concomitant]
     Dates: start: 20090430

REACTIONS (2)
  - UTERINE LEIOMYOMA [None]
  - INFECTIOUS PERITONITIS [None]
